FAERS Safety Report 25425055 (Version 2)
Quarter: 2025Q3

REPORT INFORMATION
  Report Type: Spontaneous
  Country: US (occurrence: US)
  Receive Date: 20250611
  Receipt Date: 20250709
  Transmission Date: 20251021
  Serious: No
  Sender: INSUD PHARMA
  Company Number: US-INSUD PHARMA-2505US04187

PATIENT

DRUGS (1)
  1. TESTOSTERONE [Suspect]
     Active Substance: TESTOSTERONE
     Indication: Blood testosterone decreased
     Dosage: 1 PUMP A DAY
     Route: 061
     Dates: start: 20250408

REACTIONS (4)
  - Emotional disorder [Not Recovered/Not Resolved]
  - Product dispensing issue [Unknown]
  - Incorrect dose administered by product [Unknown]
  - Drug delivery system issue [Unknown]

NARRATIVE: CASE EVENT DATE: 20250101
